FAERS Safety Report 5024266-2 (Version None)
Quarter: 2006Q2

REPORT INFORMATION
  Report Type: 
  Country: None (occurrence: None)
  Receive Date: 20060607
  Receipt Date: 20060524
  Transmission Date: 20061013
  Serious: Yes (Other)
  Sender: FDA-Public Use
  Company Number: 2006RR-02404

PATIENT
  Sex: Female

DRUGS (1)
  1. FLUOXETINE [Suspect]
     Indication: DEPRESSION
     Dosage: 20 MG, QD, TRANSPLACENTAL
     Route: 064

REACTIONS (8)
  - AGITATION NEONATAL [None]
  - BLOOD ELECTROLYTES DECREASED [None]
  - BLOOD GLUCOSE DECREASED [None]
  - DRUG EXPOSURE DURING PREGNANCY [None]
  - DRUG WITHDRAWAL SYNDROME NEONATAL [None]
  - FEEDING DISORDER OF INFANCY OR EARLY CHILDHOOD [None]
  - FEVER NEONATAL [None]
  - VOMITING NEONATAL [None]
